FAERS Safety Report 9165865 (Version 2)
Quarter: 2013Q2

REPORT INFORMATION
  Report Type: Report from Study
  Country: CA (occurrence: CA)
  Receive Date: 20130315
  Receipt Date: 20130516
  Transmission Date: 20140414
  Serious: Yes (Life-Threatening, Other)
  Sender: FDA-Public Use
  Company Number: CA-ROCHE-1202256

PATIENT
  Age: 51 Year
  Sex: Male
  Weight: 82 kg

DRUGS (6)
  1. RITUXAN [Suspect]
     Indication: GRAFT VERSUS HOST DISEASE
     Route: 042
     Dates: start: 20120215, end: 20120309
  2. RITUXAN [Suspect]
     Indication: OFF LABEL USE
  3. PREDNISONE [Concomitant]
  4. CYCLOSPORINE [Concomitant]
  5. PARIET [Concomitant]
  6. OXYBUTYNIN [Concomitant]

REACTIONS (6)
  - Atrial fibrillation [Unknown]
  - Diabetes mellitus [Unknown]
  - Scleroderma [Unknown]
  - Insomnia [Unknown]
  - Hepatic function abnormal [Recovered/Resolved]
  - Fatigue [Unknown]
